FAERS Safety Report 4571255-8 (Version None)
Quarter: 2005Q1

REPORT INFORMATION
  Report Type: 
  Country: None (occurrence: None)
  Receive Date: 20050202
  Receipt Date: 20050114
  Transmission Date: 20050727
  Serious: Yes (Death, Hospitalization)
  Sender: FDA-Public Use
  Company Number: US_0501110500

PATIENT
  Age: 42 Year
  Sex: Male
  Weight: 95 kg

DRUGS (10)
  1. ZYPREXA [Suspect]
     Indication: SCHIZOAFFECTIVE DISORDER
     Dosage: 10 MG
     Dates: start: 20010308
  2. PROZAC [Suspect]
     Dosage: 20 MG/ 1 DAY
     Dates: start: 20010314
  3. CELEXA [Concomitant]
  4. ATIVAN [Concomitant]
  5. TRAZADONE (TRAZODONE) [Concomitant]
  6. IBUPROFEN [Concomitant]
  7. PAXIL [Concomitant]
  8. SERZONE [Concomitant]
  9. WELLBUTRIN [Concomitant]
  10. RISPERDAL [Concomitant]

REACTIONS (9)
  - CARDIO-RESPIRATORY ARREST [None]
  - DEEP VEIN THROMBOSIS [None]
  - DIABETIC KETOACIDOSIS [None]
  - ELECTROLYTE IMBALANCE [None]
  - HALLUCINATION, VISUAL [None]
  - HEADACHE [None]
  - OEDEMA PERIPHERAL [None]
  - SKIN LACERATION [None]
  - TOOTHACHE [None]
